FAERS Safety Report 24910696 (Version 2)
Quarter: 2025Q1

REPORT INFORMATION
  Report Type: Spontaneous
  Country: US (occurrence: US)
  Receive Date: 20250131
  Receipt Date: 20250312
  Transmission Date: 20250408
  Serious: Yes (Disabling)
  Sender: PFIZER
  Company Number: US-PFIZER INC-202500019703

PATIENT
  Age: 69 Year
  Sex: Female
  Weight: 42.2 kg

DRUGS (16)
  1. ZIRABEV [Suspect]
     Active Substance: BEVACIZUMAB-BVZR
     Indication: Ovarian cancer
     Route: 042
     Dates: start: 20240314, end: 20241122
  2. KEYTRUDA [Concomitant]
     Active Substance: PEMBROLIZUMAB
     Dates: start: 20240314
  3. LEVOTHYROXINE [Concomitant]
     Active Substance: LEVOTHYROXINE
     Dosage: TAKE 1 TABLET BY MOUTH DAILY
  4. INSULIN LISPRO [Concomitant]
     Active Substance: INSULIN LISPRO
     Dosage: INJECT 100 UNITS UNDER THE SKIN DAILY VIA INSULIN PUMP
     Route: 058
  5. INSULIN ASPART [Concomitant]
     Active Substance: INSULIN ASPART
     Dosage: INJECT 100 UNITS UNDER THE SKIN DAILY VIA INSULIN PUMP
     Route: 058
  6. ROSUVASTATIN [Concomitant]
     Active Substance: ROSUVASTATIN
     Dosage: TAKE 1 TABLET BY MOUTH ONCE DAILY
     Route: 048
  7. BASAGLAR KWIKPEN [Concomitant]
     Active Substance: INSULIN GLARGINE
     Dosage: INJECT 10 UNITS INTO THE SKIN NIGHTLY
     Route: 058
  8. LOSARTAN [Concomitant]
     Active Substance: LOSARTAN
     Dosage: TAKE 1 TABLET BY MOUTH DAILY
     Route: 048
  9. AZELASTINE [Concomitant]
     Active Substance: AZELASTINE
     Dosage: PLACE 1 SPRAY IN EACH NOSTRIL EVERY 12 (TWELVE) HOURS
     Route: 045
  10. MONTELUKAST [Concomitant]
     Active Substance: MONTELUKAST
     Dosage: TAKE 1 TABLET BY MOUTH NIGHTLY
  11. DENOSUMAB [Concomitant]
     Active Substance: DENOSUMAB
     Route: 058
  12. CETIRIZINE HYDROCHLORIDE [Concomitant]
     Active Substance: CETIRIZINE HYDROCHLORIDE
     Dosage: TAKE 0.5 TABLET BY MOUTH DAILY 1-2 TIMES A DAY
     Route: 048
  13. VITAMIN D3 [Concomitant]
     Active Substance: CHOLECALCIFEROL
     Dosage: TAKE 1000 INT UNIT BY MOUTH 2 (TWO) TIMES A DAY
     Route: 048
  14. SODIUM CHLORIDE [Concomitant]
     Active Substance: SODIUM CHLORIDE
     Dosage: PLACE IN EYE(S) DAILY OINTMENT NOT DROP
     Route: 047
  15. INSULIN NOS [Concomitant]
     Active Substance: INSULIN NOS
  16. THERAGRAN [VITAMINS NOS] [Concomitant]
     Dosage: 1 TABLET BY MOUTH DAILY
     Route: 048

REACTIONS (3)
  - Dysphonia [Recovering/Resolving]
  - Muscle tension dysphonia [Recovering/Resolving]
  - Vocal cord thickening [Recovering/Resolving]

NARRATIVE: CASE EVENT DATE: 20241014
